FAERS Safety Report 8589378-5 (Version None)
Quarter: 2012Q3

REPORT INFORMATION
  Report Type: 
  Country: None (occurrence: None)
  Receive Date: 20120813
  Receipt Date: 20120807
  Transmission Date: 20120928
  Serious: Yes (Hospitalization)
  Sender: FDA-Public Use
  Company Number: PHHY2010FR30138

PATIENT
  Age: 50 Year
  Sex: Male

DRUGS (10)
  1. ASPIRIN [Concomitant]
  2. IMOVANE [Concomitant]
  3. PREDNISOLONE [Concomitant]
  4. NEORAL [Suspect]
     Dosage: 135 MG, UNK
  5. CELL CEPT [Concomitant]
  6. DILTIAZEM HCL [Concomitant]
  7. FOSAMAX [Concomitant]
  8. MOLSIDOMINE [Concomitant]
  9. CALCIDIA [Concomitant]
  10. ATORVASTATIN [Concomitant]

REACTIONS (4)
  - PERITONITIS [None]
  - RENAL FAILURE CHRONIC [None]
  - TOXICITY TO VARIOUS AGENTS [None]
  - NEPHROPATHY TOXIC [None]
